FAERS Safety Report 10257847 (Version 1)
Quarter: 2014Q2

REPORT INFORMATION
  Report Type: Report from Study
  Country: US (occurrence: US)
  Receive Date: 20140625
  Receipt Date: 20140625
  Transmission Date: 20141212
  Serious: Yes (Hospitalization)
  Sender: FDA-Public Use
  Company Number: US-SA-2014SA080112

PATIENT
  Age: 78 Year
  Sex: Male
  Weight: 80.28 kg

DRUGS (18)
  1. CABAZITAXEL [Suspect]
     Indication: PROSTATE CANCER
     Route: 065
  2. ANTINEOPLASTIC AGENTS [Suspect]
     Indication: PROSTATE CANCER
     Route: 042
     Dates: start: 20140602
  3. XGEVA [Concomitant]
     Route: 058
  4. ZOFRAN [Concomitant]
     Route: 048
  5. LOMOTIL [Concomitant]
     Route: 048
  6. MORPHINE SULFATE [Concomitant]
     Route: 048
  7. PREDNISONE [Concomitant]
     Route: 048
     Dates: start: 20140522
  8. POTASSIUM CHLORIDE [Concomitant]
     Route: 048
     Dates: start: 20140404
  9. DIGOXIN [Concomitant]
     Route: 048
     Dates: start: 20121130
  10. COUMADIN [Concomitant]
     Route: 048
     Dates: start: 20121025
  11. LASIX [Concomitant]
     Route: 048
     Dates: start: 20140515
  12. OMEPRAZOLE [Concomitant]
     Route: 048
     Dates: start: 20130418
  13. MECLIZINE [Concomitant]
     Route: 048
     Dates: start: 20130806
  14. DILAUDID [Concomitant]
     Dosage: DOSE: 1-2 TABLETS
     Dates: start: 20121130
  15. LOSARTAN [Concomitant]
     Route: 048
     Dates: start: 20131107
  16. CALCIUM W/VITAMIN D NOS [Concomitant]
     Dates: start: 20101227
  17. LUPRON [Concomitant]
     Dates: start: 20051201
  18. NUVIGIL [Concomitant]
     Route: 048
     Dates: start: 20131009

REACTIONS (1)
  - Mental status changes [Recovering/Resolving]
